FAERS Safety Report 8229125-X (Version None)
Quarter: 2012Q1

REPORT INFORMATION
  Report Type: 
  Country: None (occurrence: None)
  Receive Date: 20120322
  Receipt Date: 20120316
  Transmission Date: 20120608
  Serious: Yes (Other)
  Sender: FDA-Public Use
  Company Number: US-BAYER-2011-038672

PATIENT
  Sex: Female

DRUGS (38)
  1. GADOLINIUM IN UNSPECIFIED DRUG [Suspect]
     Indication: NUCLEAR MAGNETIC RESONANCE IMAGING BRAIN
     Dosage: UNK
     Dates: start: 20020717, end: 20020717
  2. AMIODARONE HYDROCHLORIDE [Concomitant]
  3. CARDIZEM [Concomitant]
  4. CLONIDINE [Concomitant]
  5. CARDURA [Concomitant]
  6. EPOGEN [Concomitant]
  7. GADOLINIUM IN UNSPECIFIED DRUG [Suspect]
     Indication: NUCLEAR MAGNETIC RESONANCE IMAGING ABDOMINAL
  8. PREDNISONE TAB [Concomitant]
  9. GANCICLOVIR [Concomitant]
  10. COLCHICINE [Concomitant]
  11. OXYCODONE HCL [Concomitant]
     Indication: PAIN IN EXTREMITY
     Dosage: UNK
     Dates: start: 20040101
  12. MAGNEVIST [Suspect]
     Indication: NUCLEAR MAGNETIC RESONANCE IMAGING
     Dosage: UNK
     Dates: start: 20040405, end: 20040405
  13. MAGNEVIST [Suspect]
     Indication: ANGIOGRAM
     Dosage: UNK
     Dates: start: 20040517, end: 20040517
  14. PROGRAF [Concomitant]
  15. ALLOPURINOL [Concomitant]
  16. LAMICTAL [Concomitant]
  17. LEVOXYL [Concomitant]
  18. MAGNEVIST [Suspect]
     Indication: VENOGRAM
     Dosage: UNK
     Dates: start: 20051207, end: 20051207
  19. NEURONTIN [Concomitant]
  20. NEXIUM [Concomitant]
  21. PLAVIX [Concomitant]
  22. FUROSEMIDE [Concomitant]
  23. GLYBURIDE [Concomitant]
     Dosage: 2.5 MG, QD
     Dates: start: 20040101
  24. GADOLINIUM IN UNSPECIFIED DRUG [Suspect]
     Indication: NUCLEAR MAGNETIC RESONANCE IMAGING
  25. ROCALTROL [Concomitant]
  26. PROGRAF [Concomitant]
  27. PREDNISONE TAB [Concomitant]
  28. AMIODARONE HYDROCHLORIDE [Concomitant]
  29. DAPSONE [Concomitant]
  30. HYDRALAZINE HCL [Concomitant]
  31. DAPSONE [Concomitant]
  32. ATENOLOL [Concomitant]
  33. RENAGEL [Concomitant]
  34. CYTOVENE [Concomitant]
  35. PROCRIT [Concomitant]
  36. LASIX [Concomitant]
     Indication: OEDEMA PERIPHERAL
     Dosage: 300 MG, BID
  37. MAGNEVIST [Suspect]
  38. MYCOPHENOLATE MOFETIL (CELLCEPT) [Concomitant]
     Indication: PROPHYLAXIS AGAINST TRANSPLANT REJECTION
     Dosage: 250 MG, BID
     Dates: start: 20040101

REACTIONS (30)
  - PARAESTHESIA [None]
  - PAIN IN EXTREMITY [None]
  - MOBILITY DECREASED [None]
  - SKIN PLAQUE [None]
  - ANHEDONIA [None]
  - NEPHROGENIC SYSTEMIC FIBROSIS [None]
  - SKIN TIGHTNESS [None]
  - SKIN INDURATION [None]
  - RASH ERYTHEMATOUS [None]
  - GAIT DISTURBANCE [None]
  - OEDEMA PERIPHERAL [None]
  - ARTHRALGIA [None]
  - SKIN HYPERPIGMENTATION [None]
  - PAIN [None]
  - PRURITUS [None]
  - INJURY [None]
  - BONE PAIN [None]
  - SKIN HYPERTROPHY [None]
  - OEDEMA [None]
  - SLEEP DISORDER [None]
  - ANXIETY [None]
  - SKIN SWELLING [None]
  - RASH PAPULAR [None]
  - DRY SKIN [None]
  - MUSCULAR WEAKNESS [None]
  - SKIN DISORDER [None]
  - EMOTIONAL DISORDER [None]
  - SKIN DISCOLOURATION [None]
  - SKIN HYPOPIGMENTATION [None]
  - JOINT CONTRACTURE [None]
